FAERS Safety Report 18301622 (Version 1)
Quarter: 2020Q3

REPORT INFORMATION
  Report Type: Spontaneous
  Country: IT (occurrence: IT)
  Receive Date: 20200923
  Receipt Date: 20200923
  Transmission Date: 20201103
  Serious: Yes (Life-Threatening, Other)
  Sender: FDA-Public Use
  Company Number: NVSC2020IT256410

PATIENT
  Age: 73 Year
  Sex: Female

DRUGS (1)
  1. QUETIAPINE. [Suspect]
     Active Substance: QUETIAPINE
     Indication: PRODUCT USED FOR UNKNOWN INDICATION
     Dosage: 400 MG (INGESTION OF 120 PILLS)
     Route: 065

REACTIONS (6)
  - Coma [Unknown]
  - Toxicity to various agents [Unknown]
  - Tachycardia [Unknown]
  - Bezoar [Unknown]
  - Hypotension [Unknown]
  - Gastric perforation [Unknown]
